FAERS Safety Report 23014047 (Version 1)
Quarter: 2023Q4

REPORT INFORMATION
  Report Type: Spontaneous
  Country: US (occurrence: US)
  Receive Date: 20231002
  Receipt Date: 20231002
  Transmission Date: 20240110
  Serious: No
  Sender: FDA-Public Use
  Company Number: US-APOTEX-2023AP013057

PATIENT
  Sex: Female

DRUGS (2)
  1. FLUTICASONE PROPIONATE [Suspect]
     Active Substance: FLUTICASONE PROPIONATE
     Indication: Deafness
     Dosage: 4 DOSAGE FORM, Q.H.S. (IN EVENING)
     Route: 045
     Dates: start: 2023, end: 2023
  2. FLUTICASONE PROPIONATE [Suspect]
     Active Substance: FLUTICASONE PROPIONATE
     Indication: Nasal congestion

REACTIONS (4)
  - Dyspnoea [Recovering/Resolving]
  - Cough [Not Recovered/Not Resolved]
  - Treatment noncompliance [Unknown]
  - Asthma [Not Recovered/Not Resolved]

NARRATIVE: CASE EVENT DATE: 20230101
